FAERS Safety Report 9125899 (Version 1)
Quarter: 2013Q1

REPORT INFORMATION
  Report Type: Spontaneous
  Country: US (occurrence: US)
  Receive Date: 20130228
  Receipt Date: 20130228
  Transmission Date: 20140127
  Serious: No
  Sender: FDA-Public Use
  Company Number: US-009507513-1302USA011029

PATIENT
  Sex: Female

DRUGS (1)
  1. AZASITE [Suspect]
     Dosage: 2 GTT, HS
     Route: 047
     Dates: start: 201209

REACTIONS (4)
  - Drug dose omission [Unknown]
  - Product quality issue [Unknown]
  - Accidental exposure to product [Unknown]
  - No adverse event [Unknown]
